FAERS Safety Report 18755728 (Version 1)
Quarter: 2021Q1

REPORT INFORMATION
  Report Type: Spontaneous
  Country: ES (occurrence: ES)
  Receive Date: 20210119
  Receipt Date: 20210119
  Transmission Date: 20210419
  Serious: Yes (Life-Threatening, Hospitalization)
  Sender: FDA-Public Use
  Company Number: ES-SUN PHARMACEUTICAL INDUSTRIES LTD-2021RR-275516

PATIENT
  Age: 75 Year
  Sex: Female

DRUGS (9)
  1. JANUMET 50 MG/1.000 MG FILM?COATED TABLETS, 56 COM [Concomitant]
     Indication: DIABETES MELLITUS
     Dosage: 1 EVERY 12 HOURS
     Route: 065
     Dates: start: 20101203
  2. ZALDIAR 37,5 MG/325 MG FILM?COATED TABLETS, 60 CO [Concomitant]
     Indication: PRODUCT USED FOR UNKNOWN INDICATION
     Dosage: 1 EVERY 8 HOURS
     Route: 065
  3. SINTROM [Concomitant]
     Active Substance: ACENOCOUMAROL
     Indication: PRODUCT USED FOR UNKNOWN INDICATION
     Dosage: IRREGULAR ACCORDING TO SCHEME
     Route: 065
  4. FLUOXETINA (2331A) [Concomitant]
     Active Substance: FLUOXETINE HYDROCHLORIDE
     Indication: PRODUCT USED FOR UNKNOWN INDICATION
     Dosage: 20MG EVERY 24 HOURS
     Route: 065
     Dates: end: 20191209
  5. EMCONCOR 5 MG COMPRIMIDOS RECUBIERTOS CON PELICULA , 60 TABLETS [Concomitant]
     Indication: PRODUCT USED FOR UNKNOWN INDICATION
     Dosage: 1 TABLET EVERY 12 HOURS
     Route: 065
     Dates: end: 20191204
  6. ALPRAZOLAM. [Suspect]
     Active Substance: ALPRAZOLAM
     Indication: INSOMNIA
     Dosage: 0.5 MILLIGRAM, TID, 0.5MG EVERY 8 HOURS
     Route: 048
     Dates: start: 20190828, end: 20201204
  7. PREGABALINA (3897A) [Concomitant]
     Active Substance: PREGABALIN
     Indication: PRODUCT USED FOR UNKNOWN INDICATION
     Dosage: 1 EVERY 12 HOURS
     Route: 065
     Dates: end: 20191209
  8. CROMATONBIC B12 1000 INYECTABLE, 8 1 ML AMPOULES [Concomitant]
     Indication: PRODUCT USED FOR UNKNOWN INDICATION
     Dosage: 1 PER MONTH
     Route: 065
  9. NOVOMIX 30 FLEXPEN 100 U/ML INJECTABLE SUSPENSION IN A PREC [Concomitant]
     Indication: PRODUCT USED FOR UNKNOWN INDICATION
     Dosage: 56UI DAILY
     Route: 065

REACTIONS (1)
  - Altered state of consciousness [Recovered/Resolved]

NARRATIVE: CASE EVENT DATE: 20191204
